FAERS Safety Report 15201900 (Version 1)
Quarter: 2018Q3

REPORT INFORMATION
  Report Type: Spontaneous
  Country: US (occurrence: US)
  Receive Date: 20180627
  Receipt Date: 20180627
  Transmission Date: 20181010
  Serious: Yes (Hospitalization)
  Sender: FDA-Public Use
  Company Number: None

PATIENT
  Sex: Female

DRUGS (7)
  1. CELEBREX [Concomitant]
     Active Substance: CELECOXIB
  2. PRAVASTATIN. [Concomitant]
     Active Substance: PRAVASTATIN
  3. CAPECITABINE. [Suspect]
     Active Substance: CAPECITABINE
     Indication: SKIN CANCER
     Route: 048
     Dates: start: 20180503
  4. ASPIRIN. [Concomitant]
     Active Substance: ASPIRIN
  5. CLONIPRAMINE [Concomitant]
  6. VITAMIN D3 [Concomitant]
     Active Substance: CHOLECALCIFEROL
  7. MEOPROLOL [Concomitant]

REACTIONS (1)
  - Hospitalisation [None]
